FAERS Safety Report 7403617-5 (Version None)
Quarter: 2011Q2

REPORT INFORMATION
  Report Type: 
  Country: None (occurrence: None)
  Receive Date: 20110408
  Receipt Date: 20110328
  Transmission Date: 20111010
  Serious: Yes (Hospitalization)
  Sender: FDA-Public Use
  Company Number: BR-PFIZER INC-2011077782

PATIENT
  Age: 61 Year
  Sex: Female

DRUGS (6)
  1. MANIDIPINE [Suspect]
     Indication: HYPERTENSION
     Dosage: 10 MG, DAILY
     Route: 048
     Dates: start: 20100801, end: 20101201
  2. AMLODIPINE BESYLATE AND OLMESARTAN MEDOXOMIL [Suspect]
     Indication: HYPERTENSION
     Dosage: 40/10MG, 1X/DAY
     Route: 048
     Dates: start: 20100801, end: 20101201
  3. AMLODIPINE BESYLATE [Suspect]
     Indication: HYPERTENSION
     Dosage: 5 MG, DAILY
     Route: 048
     Dates: start: 20100801, end: 20101201
  4. RAMIPRIL [Suspect]
     Indication: HYPERTENSION
     Dosage: 10 MG, DAILY
     Route: 048
     Dates: start: 20100801
  5. PHENOBARBITAL [Concomitant]
  6. PHENYTOIN [Concomitant]

REACTIONS (5)
  - NEUROSURGERY [None]
  - OEDEMA PERIPHERAL [None]
  - PAIN IN EXTREMITY [None]
  - HYPERAEMIA [None]
  - DRUG INEFFECTIVE [None]
